FAERS Safety Report 12769202 (Version 2)
Quarter: 2016Q4

REPORT INFORMATION
  Report Type: Spontaneous
  Country: US (occurrence: US)
  Receive Date: 20160921
  Receipt Date: 20161013
  Transmission Date: 20170207
  Serious: No
  Sender: FDA-Public Use
  Company Number: US-009507513-1609USA003195

PATIENT
  Sex: Male

DRUGS (14)
  1. FENOFIBRATE. [Concomitant]
     Active Substance: FENOFIBRATE
     Dosage: UNK
  2. ALPRAZOLAM. [Concomitant]
     Active Substance: ALPRAZOLAM
  3. AQUAPHOR TABLETS [Concomitant]
  4. INTRON A [Suspect]
     Active Substance: INTERFERON ALFA-2B
     Indication: MYCOSIS FUNGOIDES
     Dosage: 18MM IU 3MU/ 0. 5ML MDV. ON MONDAY AND THURSDAY
     Route: 058
  5. PRINIVIL [Concomitant]
     Active Substance: LISINOPRIL
  6. CALCIUM (UNSPECIFIED) [Concomitant]
     Active Substance: CALCIUM
  7. FUROSEMIDE. [Concomitant]
     Active Substance: FUROSEMIDE
  8. BENADRYL [Concomitant]
     Active Substance: DIPHENHYDRAMINE HYDROCHLORIDE
  9. NIASPAN [Concomitant]
     Active Substance: NIACIN
  10. ATORVASTATIN [Concomitant]
     Active Substance: ATORVASTATIN
  11. TARGRETIN [Concomitant]
     Active Substance: BEXAROTENE
  12. PREDNISONE. [Concomitant]
     Active Substance: PREDNISONE
  13. LEVOTHYROXINE SODIUM. [Concomitant]
     Active Substance: LEVOTHYROXINE SODIUM
  14. HYDROXYZINE HYDROCHLORIDE. [Concomitant]
     Active Substance: HYDROXYZINE HYDROCHLORIDE

REACTIONS (2)
  - Dizziness [Not Recovered/Not Resolved]
  - Ocular discomfort [Not Recovered/Not Resolved]
